FAERS Safety Report 24226427 (Version 2)
Quarter: 2024Q4

REPORT INFORMATION
  Report Type: Spontaneous
  Country: US (occurrence: US)
  Receive Date: 20240820
  Receipt Date: 20241017
  Transmission Date: 20250115
  Serious: No
  Sender: APOTEX
  Company Number: US-APOTEX-2024AP009163

PATIENT
  Sex: Female

DRUGS (1)
  1. AZELASTINE HYDROCHLORIDE\FLUTICASONE PROPIONATE [Suspect]
     Active Substance: AZELASTINE HYDROCHLORIDE\FLUTICASONE PROPIONATE
     Indication: Product used for unknown indication
     Dosage: 2 DOSAGE FORM, BID (DOSE REGIME OF 1-SPRAY EACH NOSTRIL)
     Route: 045

REACTIONS (4)
  - Product dose omission issue [Unknown]
  - Incorrect dose administered [Unknown]
  - Product delivery mechanism issue [Unknown]
  - No adverse event [Unknown]
